FAERS Safety Report 6694668-7 (Version None)
Quarter: 2010Q2

REPORT INFORMATION
  Report Type: 
  Country: None (occurrence: None)
  Receive Date: 20100423
  Receipt Date: 20100413
  Transmission Date: 20101027
  Serious: Yes (Hospitalization)
  Sender: FDA-Public Use
  Company Number: US-JNJFOC-20100403324

PATIENT
  Age: 55 Year
  Sex: Female
  Weight: 66.5 kg

DRUGS (19)
  1. PREZISTA [Suspect]
     Indication: HIV INFECTION
     Route: 048
  2. MARAVIROC [Suspect]
     Indication: HIV INFECTION
     Route: 048
  3. MARAVIROC [Suspect]
     Route: 048
  4. TENOFOVIR [Concomitant]
     Indication: HIV INFECTION
  5. TENOFOVIR [Concomitant]
  6. RITONAVIR [Concomitant]
     Indication: HIV INFECTION
  7. RITONAVIR [Concomitant]
  8. ZIDOVUDINE [Concomitant]
     Indication: HIV INFECTION
  9. ZIDOVUDINE [Concomitant]
  10. LAMIVUDINE [Concomitant]
     Indication: HIV INFECTION
  11. LAMIVUDINE [Concomitant]
  12. ENFUVIRTIDE [Concomitant]
     Indication: HIV INFECTION
  13. CIPROFLOXACIN [Concomitant]
  14. PREDNISONE [Concomitant]
  15. HYOSCINE [Concomitant]
  16. DEXCHLORPHENIRAMINE MALEATE [Concomitant]
  17. BACTRIM [Concomitant]
  18. DIPIRONA [Concomitant]
  19. FOSAMPRENAVIR [Concomitant]

REACTIONS (9)
  - ABDOMINAL PAIN [None]
  - DECREASED APPETITE [None]
  - IMMUNE RECONSTITUTION SYNDROME [None]
  - NAUSEA [None]
  - PYREXIA [None]
  - SKIN LESION [None]
  - URINARY TRACT PAIN [None]
  - VAGINAL LESION [None]
  - VOMITING [None]
